FAERS Safety Report 9250595 (Version 1)
Quarter: 2013Q1

REPORT INFORMATION
  Report Type: Spontaneous
  Country: US (occurrence: None)
  Receive Date: 20130305
  Receipt Date: 20130305
  Transmission Date: 20140127
  Serious: Yes (Hospitalization, Other)
  Sender: FDA-Public Use
  Company Number: 163-21880-12042746

PATIENT
  Age: 84 Year
  Sex: Female

DRUGS (6)
  1. REVLIMID [Suspect]
     Indication: MYELODYSPLASTIC SYNDROME
     Dosage: TEMPORARILY INTERRUPTED
     Route: 048
     Dates: start: 201203
  2. PROCRIT [Suspect]
     Route: 058
     Dates: start: 20120319
  3. LOVENOX (HEPARIN FRACTION, SODIUM SALT) [Concomitant]
  4. COUMADIN (WARFARIN SODIUM) [Concomitant]
  5. LOSTATIN  (LOVASTATIN) [Concomitant]
  6. RAMIPRIL (RAMIPRIL) [Concomitant]

REACTIONS (1)
  - Deep vein thrombosis [None]
